FAERS Safety Report 20558927 (Version 1)
Quarter: 2022Q1

REPORT INFORMATION
  Report Type: Spontaneous
  Country: US (occurrence: US)
  Receive Date: 20220307
  Receipt Date: 20220307
  Transmission Date: 20220423
  Serious: Yes (Death, Hospitalization, Other)
  Sender: FDA-Public Use
  Company Number: US-BRISTOL-MYERS SQUIBB COMPANY-BMS-2022-031889

PATIENT
  Age: 61 Year
  Sex: Male
  Weight: 67.13 kg

DRUGS (5)
  1. OPDIVO [Suspect]
     Active Substance: NIVOLUMAB
     Indication: Tonsil cancer
     Dosage: 480 MILLIGRAM, Q4WK
     Route: 042
     Dates: start: 20211018
  2. OPDIVO [Suspect]
     Active Substance: NIVOLUMAB
     Indication: Squamous cell carcinoma of the tongue
  3. YERVOY [Suspect]
     Active Substance: IPILIMUMAB
     Indication: Tonsil cancer
     Dosage: 20 MILLIGRAM, Q2WK
     Route: 042
     Dates: start: 20211018
  4. YERVOY [Suspect]
     Active Substance: IPILIMUMAB
     Indication: Squamous cell carcinoma of the tongue
  5. SPRYCEL [Suspect]
     Active Substance: DASATINIB
     Indication: Product used for unknown indication
     Dosage: UNK
     Route: 065

REACTIONS (2)
  - Death [Fatal]
  - Intentional product use issue [Unknown]

NARRATIVE: CASE EVENT DATE: 20211018
